FAERS Safety Report 21557465 (Version 2)
Quarter: 2022Q4

REPORT INFORMATION
  Report Type: Spontaneous
  Country: PL (occurrence: PL)
  Receive Date: 20221105
  Receipt Date: 20221212
  Transmission Date: 20230113
  Serious: Yes (Other)
  Sender: FDA-Public Use
  Company Number: PL-Accord-284787

PATIENT
  Age: 74 Year
  Sex: Female

DRUGS (3)
  1. CARBOPLATIN [Suspect]
     Active Substance: CARBOPLATIN
     Indication: Lung neoplasm malignant
     Dates: start: 202105
  2. PACLITAXEL [Suspect]
     Active Substance: PACLITAXEL
     Indication: Lung neoplasm malignant
     Dosage: DOSE REDUCED TO 50 PERCENT
     Dates: start: 202105
  3. PEMBROLIZUMAB [Concomitant]
     Active Substance: PEMBROLIZUMAB
     Indication: Lung neoplasm malignant
     Dates: start: 202105

REACTIONS (4)
  - Hyperthyroidism [Recovered/Resolved]
  - Anaemia [Unknown]
  - Blood urea increased [Unknown]
  - Fatigue [Unknown]

NARRATIVE: CASE EVENT DATE: 20210101
